FAERS Safety Report 6596683-0 (Version None)
Quarter: 2010Q1

REPORT INFORMATION
  Report Type: 
  Country: None (occurrence: None)
  Receive Date: 20100223
  Receipt Date: 20100219
  Transmission Date: 20100710
  Serious: Yes (Hospitalization, Disabling, Other)
  Sender: FDA-Public Use
  Company Number: BE-BAYER-201016619GPV

PATIENT
  Sex: Male

DRUGS (3)
  1. NEXAVAR [Suspect]
     Indication: HEPATIC NEOPLASM MALIGNANT
  2. CISPLATIN [Concomitant]
     Indication: LUNG NEOPLASM MALIGNANT
  3. GEMCITABIN [Concomitant]
     Indication: LUNG NEOPLASM MALIGNANT

REACTIONS (3)
  - ARTERIAL OCCLUSIVE DISEASE [None]
  - ARTERIAL THROMBOSIS LIMB [None]
  - PERIPHERAL ISCHAEMIA [None]
